FAERS Safety Report 4572151-2 (Version None)
Quarter: 2005Q1

REPORT INFORMATION
  Report Type: 
  Country: None (occurrence: None)
  Receive Date: 20050202
  Receipt Date: 20050119
  Transmission Date: 20050727
  Serious: Yes (Death)
  Sender: FDA-Public Use
  Company Number: P2004000007

PATIENT
  Age: 68 Year
  Sex: Male

DRUGS (3)
  1. PLENAXIS [Suspect]
     Indication: PROSTATE CANCER
     Dosage: 100MG, SINGLE, INTRAMUSCULAR
     Route: 030
     Dates: start: 20040618, end: 20040618
  2. PLENAXIS [Suspect]
     Indication: PROSTATE CANCER
     Dosage: 100 MG, SINGLE, INTRAMUSCULAR
     Route: 030
     Dates: start: 20040628, end: 20040628
  3. DITROPAN [Concomitant]

REACTIONS (6)
  - ABASIA [None]
  - APHASIA [None]
  - CONSTIPATION [None]
  - DYSARTHRIA [None]
  - INCOHERENT [None]
  - URINARY RETENTION [None]
